FAERS Safety Report 8300843-8 (Version None)
Quarter: 2012Q1

REPORT INFORMATION
  Report Type: 
  Country: None (occurrence: None)
  Receive Date: 20120326
  Receipt Date: 20111206
  Transmission Date: 20120608
  Serious: Yes (Other)
  Sender: FDA-Public Use
  Company Number: PHHY2011US58901

PATIENT
  Age: 52 Year
  Sex: Male

DRUGS (5)
  1. JANUVIA [Concomitant]
  2. TASIGNA [Suspect]
     Dosage: 300 MG, BID, ORAL
     Route: 048
  3. GLYBURIDE [Concomitant]
  4. METFORMIN HCL [Concomitant]
  5. TASIGNA [Suspect]
     Indication: CHRONIC MYELOID LEUKAEMIA
     Dosage: 300 MG, BID, ORAL
     Route: 048
     Dates: start: 20110627

REACTIONS (14)
  - BLOOD GLUCOSE INCREASED [None]
  - EYE HAEMORRHAGE [None]
  - MUSCULOSKELETAL PAIN [None]
  - NASOPHARYNGITIS [None]
  - MUSCLE SPASMS [None]
  - NASAL CONGESTION [None]
  - RASH [None]
  - MYALGIA [None]
  - MALAISE [None]
  - ATRIAL FIBRILLATION [None]
  - OEDEMA [None]
  - INSOMNIA [None]
  - CONSTIPATION [None]
  - HYPOTHYROIDISM [None]
